FAERS Safety Report 22040336 (Version 2)
Quarter: 2024Q1

REPORT INFORMATION
  Report Type: Spontaneous
  Country: US (occurrence: US)
  Receive Date: 20230227
  Receipt Date: 20240110
  Transmission Date: 20240410
  Serious: Yes (Hospitalization, Other)
  Sender: FDA-Public Use
  Company Number: US-JAZZ-2022-US-011200

PATIENT
  Age: 28 Year
  Sex: Female
  Weight: 70.295 kg

DRUGS (8)
  1. SUNOSI [Suspect]
     Active Substance: SOLRIAMFETOL
     Indication: Narcolepsy
     Dosage: 75 MILLIGRAM, QD
     Route: 048
     Dates: start: 2021
  2. SUNOSI [Suspect]
     Active Substance: SOLRIAMFETOL
     Dosage: 75 MILLIGRAM, QD
     Route: 048
     Dates: start: 20220217
  3. PROVIGIL [Concomitant]
     Active Substance: MODAFINIL
     Indication: Pregnancy
     Dosage: 325 MILLIGRAM, QD
     Route: 048
     Dates: start: 20220404
  4. MINERALS\VITAMINS [Concomitant]
     Active Substance: MINERALS\VITAMINS
     Indication: Pregnancy
     Dosage: UNK, QD
     Route: 048
     Dates: start: 20220404
  5. VITAMIN B12 [Concomitant]
     Active Substance: CYANOCOBALAMIN
     Indication: Nausea
     Dosage: 25 MILLIGRAM, BID
     Route: 048
     Dates: start: 20220404
  6. IRON [Concomitant]
     Active Substance: IRON
     Indication: Pregnancy
     Dosage: 325 MILLIGRAM
     Route: 048
     Dates: start: 20220404
  7. PYRIDOXINE [Concomitant]
     Active Substance: PYRIDOXINE
     Indication: Product used for unknown indication
     Dosage: 25 MILLIGRAM, BID
     Route: 048
     Dates: start: 20220404
  8. DOXYLAMINE SUCCINATE [Concomitant]
     Active Substance: DOXYLAMINE SUCCINATE
     Indication: Product used for unknown indication
     Dosage: 25 MILLIGRAM
     Route: 065
     Dates: start: 20220404

REACTIONS (7)
  - Uterine leiomyoma [Not Recovered/Not Resolved]
  - Polyhydramnios [Recovered/Resolved]
  - Pre-eclampsia [Recovered/Resolved]
  - Premature baby [Not Recovered/Not Resolved]
  - Nonreassuring foetal heart rate pattern [Recovered/Resolved]
  - Nausea [Not Recovered/Not Resolved]
  - Exposure during pregnancy [Unknown]

NARRATIVE: CASE EVENT DATE: 20220404
